FAERS Safety Report 7234150-1 (Version None)
Quarter: 2011Q1

REPORT INFORMATION
  Report Type: 
  Country: None (occurrence: None)
  Receive Date: 20110119
  Receipt Date: 20110113
  Transmission Date: 20110831
  Serious: No
  Sender: FDA-Public Use
  Company Number: US-PFIZER INC-2011009502

PATIENT
  Sex: Male
  Weight: 95.238 kg

DRUGS (1)
  1. VIAGRA [Suspect]
     Dosage: UNK
     Route: 048
     Dates: start: 20110113

REACTIONS (2)
  - PENILE CURVATURE [None]
  - ERECTION INCREASED [None]
